FAERS Safety Report 9961658 (Version 2)
Quarter: 2014Q1

REPORT INFORMATION
  Report Type: Spontaneous
  Country: GB (occurrence: GB)
  Receive Date: 20140305
  Receipt Date: 20140326
  Transmission Date: 20141002
  Serious: Yes (Hospitalization)
  Sender: FDA-Public Use
  Company Number: PHFR2014GB001890

PATIENT
  Age: 45 Year
  Sex: Male

DRUGS (12)
  1. CLOZARIL [Suspect]
     Dosage: UNK UKN, UNK
     Route: 048
     Dates: start: 20090714, end: 20140224
  2. CLOZARIL [Suspect]
     Dosage: 150 MG, UNK
     Dates: start: 20140301
  3. SERTRALINE [Concomitant]
     Indication: DEPRESSED MOOD
     Dosage: 100 MG, UNK
     Route: 048
     Dates: start: 20140301
  4. METFORMIN [Concomitant]
     Dosage: 1500 MG, BID
     Dates: start: 20120322
  5. ESOMEPRAZOLE [Concomitant]
     Dosage: 80 MG, UNK
     Route: 048
  6. ATORVASTATIN [Concomitant]
     Dosage: 80 MG, UNK
     Route: 048
  7. APO-FOLIC ACID [Concomitant]
     Dosage: 5 MG, UNK
  8. ADDERA D3 [Concomitant]
     Dosage: 1 TABLET
  9. CHLORPHENIRAMINE [Concomitant]
     Dosage: 16 MG, UNK
  10. OLYSTER [Concomitant]
     Dosage: 240 MG, UNK
  11. CO CODAMOL [Concomitant]
     Dosage: 4 TABLET
  12. MOVICOL [Concomitant]
     Dosage: UNK UKN, UNK

REACTIONS (5)
  - Fall [Recovered/Resolved]
  - Mental impairment [Recovered/Resolved]
  - Blood creatine phosphokinase increased [Recovered/Resolved]
  - Psychotic disorder [Recovering/Resolving]
  - Contusion [Unknown]
